FAERS Safety Report 8143349-1 (Version None)
Quarter: 2012Q1

REPORT INFORMATION
  Report Type: 
  Country: None (occurrence: None)
  Receive Date: 20120217
  Receipt Date: 20120208
  Transmission Date: 20120608
  Serious: Yes (Hospitalization)
  Sender: FDA-Public Use
  Company Number: US-PFIZER INC-2012034812

PATIENT
  Sex: Female

DRUGS (3)
  1. TEMSIROLIMUS [Suspect]
     Indication: TONGUE NEOPLASM MALIGNANT STAGE UNSPECIFIED
     Dosage: UNK
     Dates: start: 20120119, end: 20120125
  2. PACLITAXEL [Suspect]
     Indication: TONGUE NEOPLASM MALIGNANT STAGE UNSPECIFIED
     Dosage: UNK
     Dates: start: 20120119, end: 20120125
  3. CARBOPLATIN [Suspect]
     Indication: TONGUE NEOPLASM MALIGNANT STAGE UNSPECIFIED
     Dosage: UNK
     Dates: start: 20120119, end: 20120125

REACTIONS (2)
  - PNEUMONIA [None]
  - FEBRILE NEUTROPENIA [None]
